FAERS Safety Report 5959708-9 (Version None)
Quarter: 2008Q4

REPORT INFORMATION
  Report Type: 
  Country: None (occurrence: None)
  Receive Date: 20081119
  Receipt Date: 20081119
  Transmission Date: 20090506
  Serious: Yes (Hospitalization)
  Sender: FDA-Public Use
  Company Number: None

PATIENT
  Sex: Male

DRUGS (13)
  1. WARFARIN SODIUM [Suspect]
     Indication: ATRIAL FIBRILLATION
     Dosage: 2 MG DAILY PO
     Route: 048
  2. OXYCODONE AND ACETAMINOPHEN [Concomitant]
  3. AMILORIDE HYDROCHLORIDE [Concomitant]
  4. LOSARTAN POTASSIUM [Concomitant]
  5. HYDROCHLOROTHIAZIDE [Concomitant]
  6. AMALODIPINE [Concomitant]
  7. ZANTAC [Concomitant]
  8. MGOX [Concomitant]
  9. FUROSEMIDE [Concomitant]
  10. BUSPIRONE HCL [Concomitant]
  11. SPIRIVA [Concomitant]
  12. SYNTHROID [Concomitant]
  13. METROLOL [Concomitant]

REACTIONS (6)
  - ABDOMINAL PAIN [None]
  - HAEMOGLOBIN DECREASED [None]
  - HAEMORRHAGE [None]
  - INTERNATIONAL NORMALISED RATIO INCREASED [None]
  - NAUSEA [None]
  - VOMITING [None]
